FAERS Safety Report 11822536 (Version 2)
Quarter: 2016Q4

REPORT INFORMATION
  Report Type: Spontaneous
  Country: US (occurrence: US)
  Receive Date: 20151210
  Receipt Date: 20161123
  Transmission Date: 20170206
  Serious: Yes (Death, Hospitalization)
  Sender: FDA-Public Use
  Company Number: US-JNJFOC-20150520107

PATIENT
  Sex: Male

DRUGS (12)
  1. HYDROCODONE/ACETAMINOPHEN [Concomitant]
     Active Substance: ACETAMINOPHEN\HYDROCODONE
  2. MAGNESIUM [Concomitant]
     Active Substance: MAGNESIUM
  3. IMBRUVICA [Suspect]
     Active Substance: IBRUTINIB
     Indication: PRODUCT USED FOR UNKNOWN INDICATION
     Route: 048
     Dates: start: 20150326, end: 2015
  4. VITAMIN C [Concomitant]
     Active Substance: ASCORBIC ACID
  5. IMBRUVICA [Suspect]
     Active Substance: IBRUTINIB
     Indication: PRODUCT USED FOR UNKNOWN INDICATION
     Route: 048
     Dates: start: 2015
  6. LISINOPRIL. [Concomitant]
     Active Substance: LISINOPRIL
  7. NEURONTIN [Concomitant]
     Active Substance: GABAPENTIN
  8. CLONAZEPAM. [Concomitant]
     Active Substance: CLONAZEPAM
  9. DEXAMETHASONE. [Concomitant]
     Active Substance: DEXAMETHASONE
  10. LORATADINE. [Concomitant]
     Active Substance: LORATADINE
  11. FISH OIL [Concomitant]
     Active Substance: FISH OIL
  12. GABAPENTIN. [Concomitant]
     Active Substance: GABAPENTIN

REACTIONS (2)
  - Lung neoplasm malignant [Fatal]
  - Brain neoplasm malignant [Fatal]
